FAERS Safety Report 4429134-2 (Version None)
Quarter: 2004Q3

REPORT INFORMATION
  Report Type: 
  Country: None (occurrence: None)
  Receive Date: 20040726
  Receipt Date: 20040311
  Transmission Date: 20050211
  Serious: No
  Sender: FDA-Public Use
  Company Number: USA040361585

PATIENT
  Age: 73 Year
  Sex: Female
  Weight: 63 kg

DRUGS (8)
  1. FORTEO [Suspect]
     Indication: OSTEOPOROSIS
     Dosage: 20 UG/1 DAY
     Dates: start: 20040226
  2. PRILOSEC [Concomitant]
  3. LEVOXYL [Concomitant]
  4. LIPITOR [Concomitant]
  5. ATENOLOL [Concomitant]
  6. QUININE [Concomitant]
  7. FOSAMAX [Concomitant]
  8. CALCIUM WITH VITAMIN D [Concomitant]

REACTIONS (1)
  - INJECTION SITE HAEMORRHAGE [None]
